FAERS Safety Report 5055976-9 (Version None)
Quarter: 2006Q3

REPORT INFORMATION
  Report Type: 
  Country: None (occurrence: None)
  Receive Date: 20060720
  Receipt Date: 20060711
  Transmission Date: 20061208
  Serious: Yes (Other)
  Sender: FDA-Public Use
  Company Number: PHEH2006US09003

PATIENT
  Age: 60 Year
  Sex: Male

DRUGS (1)
  1. LESCOL [Suspect]
     Dosage: 40 MG, QD

REACTIONS (2)
  - SURGERY [None]
  - TENDON RUPTURE [None]
